FAERS Safety Report 8709216 (Version 3)
Quarter: 2013Q4

REPORT INFORMATION
  Report Type: Report from Study
  Country: AT (occurrence: AT)
  Receive Date: 20120806
  Receipt Date: 20131101
  Transmission Date: 20140711
  Serious: Yes (Other)
  Sender: FDA-Public Use
  Company Number: AT-CELGENEUS-009-21880-12062598

PATIENT
  Age: 78 Year
  Sex: Male
  Weight: 79.6 kg

DRUGS (6)
  1. REVLIMID [Suspect]
     Indication: CHRONIC MYELOMONOCYTIC LEUKAEMIA
     Route: 048
     Dates: start: 20120521, end: 20120528
  2. REVLIMID [Suspect]
     Route: 048
     Dates: start: 20120606, end: 20120719
  3. REVLIMID [Suspect]
     Route: 048
     Dates: start: 20120727
  4. THROMBO-ASS [Concomitant]
     Indication: PRODUCT USED FOR UNKNOWN INDICATION
     Route: 065
     Dates: start: 2012
  5. BISOSTAD [Concomitant]
     Indication: PRODUCT USED FOR UNKNOWN INDICATION
     Route: 065
     Dates: start: 2012
  6. FERRETAB [Concomitant]
     Indication: PRODUCT USED FOR UNKNOWN INDICATION
     Dosage: 4 CAPSULE
     Route: 065
     Dates: start: 20120507, end: 20120726

REACTIONS (2)
  - Erythema [Recovered/Resolved]
  - Hypersensitivity vasculitis [Recovered/Resolved]
